FAERS Safety Report 14646929 (Version 1)
Quarter: 2018Q1

REPORT INFORMATION
  Report Type: Spontaneous
  Country: US (occurrence: US)
  Receive Date: 20180315
  Receipt Date: 20180315
  Transmission Date: 20180509
  Serious: Yes (Disabling)
  Sender: FDA-Public Use
  Company Number: None

PATIENT
  Age: 45 Year
  Sex: Female
  Weight: 65.25 kg

DRUGS (2)
  1. LEVOFLOXACIN. [Suspect]
     Active Substance: LEVOFLOXACIN
     Indication: SINUSITIS
     Dosage: ?          QUANTITY:10 TABLET(S);?
     Route: 048
  2. SERTRALINE [Concomitant]
     Active Substance: SERTRALINE HYDROCHLORIDE

REACTIONS (18)
  - Abdominal pain upper [None]
  - Throat irritation [None]
  - Heart rate increased [None]
  - Impaired work ability [None]
  - Arthralgia [None]
  - Pain in extremity [None]
  - Diarrhoea [None]
  - Hypoaesthesia [None]
  - Back pain [None]
  - Paraesthesia [None]
  - Feeling cold [None]
  - Palpitations [None]
  - Pain [None]
  - Feeling hot [None]
  - Epistaxis [None]
  - Muscular weakness [None]
  - Gait disturbance [None]
  - Muscle tightness [None]

NARRATIVE: CASE EVENT DATE: 20180303
